FAERS Safety Report 24646826 (Version 6)
Quarter: 2025Q4

REPORT INFORMATION
  Report Type: Spontaneous
  Country: JP (occurrence: JP)
  Receive Date: 20241121
  Receipt Date: 20251003
  Transmission Date: 20260117
  Serious: Yes (Other)
  Sender: GENMAB
  Company Number: JP-GENMAB-2024-04215

PATIENT
  Age: 62 Year
  Sex: Male

DRUGS (7)
  1. EPKINLY [Suspect]
     Active Substance: EPCORITAMAB-BYSP
     Indication: Diffuse large B-cell lymphoma refractory
     Dosage: 0.16 MILLIGRAM, SINGLE
     Route: 058
     Dates: start: 20240801, end: 20240801
  2. EPKINLY [Suspect]
     Active Substance: EPCORITAMAB-BYSP
     Dosage: 0.8 MILLIGRAM, SINGLE
     Route: 058
     Dates: start: 20240808, end: 20240808
  3. EPKINLY [Suspect]
     Active Substance: EPCORITAMAB-BYSP
     Dosage: 48 MILLIGRAM
     Route: 058
     Dates: start: 20240816
  4. DEXAMETHASONE [Concomitant]
     Active Substance: DEXAMETHASONE
     Indication: Premedication
     Dosage: 16 MILLIGRAM, ADMINISTERED AS PER PACKAGE INSERT (JPPI), FROM THE FIRST TO THE FOURTH ADMINISTRATION
     Dates: start: 20240801, end: 20240826
  5. PREDNISOLONE [Concomitant]
     Active Substance: PREDNISOLONE
     Dosage: 4 MILLIGRAM, ADMINISTERED SEVERAL DAYS AFTER THE FIRST ADMINISTRATION OF EPKINLY IN CYCLE 1
     Dates: start: 202408, end: 202408
  6. PREDNISOLONE [Concomitant]
     Active Substance: PREDNISOLONE
     Dosage: 3 MILLIGRAM, ADMINISTERED SEVERAL DAYS AFTER THE SECOND ADMINISTRATION OF EPKINLY IN CYCLE 1
     Dates: start: 202408, end: 202408
  7. PREDNISOLONE [Concomitant]
     Active Substance: PREDNISOLONE
     Dosage: 2 MILLIGRAM, ADMINISTERED SEVERAL DAYS AFTER THE THIRD ADMINISTRATION OF EPKINLY IN CYCLE 1
     Dates: start: 202408, end: 202408

REACTIONS (3)
  - Tumour pseudoprogression [Unknown]
  - Cytokine release syndrome [Unknown]
  - Cytokine release syndrome [Unknown]

NARRATIVE: CASE EVENT DATE: 20240813
